FAERS Safety Report 7487424-3 (Version None)
Quarter: 2011Q2

REPORT INFORMATION
  Report Type: 
  Country: None (occurrence: None)
  Receive Date: 20110510
  Receipt Date: 20110429
  Transmission Date: 20111010
  Serious: Yes (Disabling)
  Sender: FDA-Public Use
  Company Number: 1000017930

PATIENT
  Age: 44 Year
  Sex: Female
  Weight: 68 kg

DRUGS (3)
  1. CITALOPRAM HYDROBROMIDE [Suspect]
     Indication: PANIC DISORDER
     Dosage: 20 MG (20 MG, 1 IN 1 D),ORAL
     Route: 048
     Dates: start: 20080701, end: 20100201
  2. LEVOTHYROXINE (LEVOTHYROXINE SODIUM) (LEVOTHYROXINE SODIUM) [Concomitant]
  3. DIPIPERON (PIPAMPERONE HYDROCHLORIDE)  (PIPAMPERONE HYDROCHLORIDE) [Concomitant]

REACTIONS (3)
  - FLATULENCE [None]
  - WEIGHT INCREASED [None]
  - GASTROINTESTINAL HYPOMOTILITY [None]
